FAERS Safety Report 9441741 (Version 1)
Quarter: 2013Q3

REPORT INFORMATION
  Report Type: Spontaneous
  Country: US (occurrence: US)
  Receive Date: 20130806
  Receipt Date: 20130806
  Transmission Date: 20140515
  Serious: No
  Sender: FDA-Public Use
  Company Number: US-009507513-1307USA016904

PATIENT
  Age: 67 Year
  Sex: Female

DRUGS (6)
  1. ZETIA [Suspect]
     Indication: BLOOD CHOLESTEROL
     Dosage: 10 MG, UNK
     Route: 048
     Dates: start: 201304, end: 20130728
  2. BENADRYL [Concomitant]
  3. DOXEPIN HYDROCHLORIDE [Concomitant]
  4. HYDROXYZINE HYDROCHLORIDE [Concomitant]
  5. ZANTAC [Concomitant]
  6. LEVOCETIRIZINE [Concomitant]

REACTIONS (3)
  - Chest pain [Not Recovered/Not Resolved]
  - Rash generalised [Not Recovered/Not Resolved]
  - Urticaria [Not Recovered/Not Resolved]
